FAERS Safety Report 17671311 (Version 1)
Quarter: 2020Q2

REPORT INFORMATION
  Report Type: Spontaneous
  Country: US (occurrence: US)
  Receive Date: 20200415
  Receipt Date: 20200415
  Transmission Date: 20200713
  Serious: No
  Sender: FDA-Public Use
  Company Number: None

PATIENT
  Age: 57 Year
  Sex: Female
  Weight: 104.4 kg

DRUGS (17)
  1. XGEVA [Concomitant]
     Active Substance: DENOSUMAB
  2. ATIVAN [Concomitant]
     Active Substance: LORAZEPAM
  3. FLONASE [Concomitant]
     Active Substance: FLUTICASONE PROPIONATE
  4. PALONOSETRON 0.25MG/2ML [Concomitant]
  5. DEXAMETHASONE. [Concomitant]
     Active Substance: DEXAMETHASONE
  6. SANCUSO [Concomitant]
     Active Substance: GRANISETRON
  7. CLARITIN [Concomitant]
     Active Substance: LORATADINE
  8. CITALOPRAM [Concomitant]
     Active Substance: CITALOPRAM HYDROBROMIDE
  9. ASPIRIN 81MG, ORAL [Concomitant]
  10. LEVETIRACETAM. [Concomitant]
     Active Substance: LEVETIRACETAM
  11. ONDANSETRON [Concomitant]
     Active Substance: ONDANSETRON
  12. OLANZAPINE. [Concomitant]
     Active Substance: OLANZAPINE
  13. METOPROLOL SUCCINATE ER [Concomitant]
     Active Substance: METOPROLOL SUCCINATE
  14. XPOVIO [Suspect]
     Active Substance: SELINEXOR
     Indication: PLASMA CELL MYELOMA
     Dosage: ?          OTHER FREQUENCY:TWICE A WEEK;?
     Route: 048
     Dates: start: 20191212, end: 20200415
  15. KYPROLIS [Concomitant]
     Active Substance: CARFILZOMIB
  16. OMEPRAZOLE. [Concomitant]
     Active Substance: OMEPRAZOLE
  17. ACYCLOVIR. [Concomitant]
     Active Substance: ACYCLOVIR

REACTIONS (1)
  - Hospice care [None]

NARRATIVE: CASE EVENT DATE: 20200415
